FAERS Safety Report 9308029 (Version 1)
Quarter: 2013Q2

REPORT INFORMATION
  Report Type: Spontaneous
  Country: US (occurrence: US)
  Receive Date: 20130524
  Receipt Date: 20130524
  Transmission Date: 20140414
  Serious: No
  Sender: FDA-Public Use
  Company Number: US-GLAXOSMITHKLINE-A1015485A

PATIENT
  Age: 57 Year
  Sex: Female

DRUGS (11)
  1. BACTROBAN [Suspect]
     Indication: STAPHYLOCOCCAL INFECTION
     Dosage: 1TSP TWICE PER DAY
     Route: 045
     Dates: start: 20130306, end: 20130310
  2. FLONASE [Concomitant]
  3. CRESTOR [Concomitant]
  4. LEVOTHYROXINE [Concomitant]
  5. LEXAPRO [Concomitant]
  6. LISINOPRIL [Concomitant]
  7. TRAMADOL [Concomitant]
  8. CYCLOBENZAPRINE [Concomitant]
  9. SAVELLA [Concomitant]
  10. NAPROXEN SODIUM [Concomitant]
  11. CORTISONE [Concomitant]

REACTIONS (4)
  - Device malfunction [Recovered/Resolved]
  - Product quality issue [Unknown]
  - Foreign body [Unknown]
  - Wrong technique in drug usage process [Unknown]
